FAERS Safety Report 7356403-9 (Version None)
Quarter: 2011Q1

REPORT INFORMATION
  Report Type: 
  Country: None (occurrence: None)
  Receive Date: 20110316
  Receipt Date: 20110310
  Transmission Date: 20110831
  Serious: Yes (Hospitalization)
  Sender: FDA-Public Use
  Company Number: IN-ELI_LILLY_AND_COMPANY-IN201103003083

PATIENT
  Age: 69 Year
  Sex: Female

DRUGS (2)
  1. HUMULIN R [Suspect]
     Indication: DIABETES MELLITUS
     Dosage: 14 U, EVERY HOUR
     Route: 042
     Dates: start: 20110309
  2. INSULIN ACTRAPID                   /00646001/ [Concomitant]
     Indication: BLOOD GLUCOSE INCREASED
     Dates: start: 20110307

REACTIONS (1)
  - DIABETES MELLITUS INADEQUATE CONTROL [None]
